FAERS Safety Report 16478683 (Version 11)
Quarter: 2020Q2

REPORT INFORMATION
  Report Type: Spontaneous
  Country: US (occurrence: US)
  Receive Date: 20190626
  Receipt Date: 20200403
  Transmission Date: 20200713
  Serious: Yes (Other)
  Sender: FDA-Public Use
  Company Number: US-PFIZER INC-2019271610

PATIENT
  Age: 54 Year
  Sex: Female
  Weight: 82 kg

DRUGS (4)
  1. LYRICA [Suspect]
     Active Substance: PREGABALIN
     Indication: NEURALGIA
  2. TOUJEO [Concomitant]
     Active Substance: INSULIN GLARGINE
     Indication: DIABETES MELLITUS
     Dosage: UNK
  3. INSULIN [Concomitant]
     Active Substance: INSULIN NOS
     Dosage: UNK UNK, 4X/DAY (SHOOT FOUR TIMES A DAY)
  4. LYRICA [Suspect]
     Active Substance: PREGABALIN
     Indication: NEUROPATHY PERIPHERAL
     Dosage: 300 MG, 2X/DAY (300 MG IN THE MORNING AND 300 MG AT NIGHT)/BID (TWO TIMES A DAY)
     Route: 048

REACTIONS (16)
  - Shock [Unknown]
  - Blood glucose decreased [Unknown]
  - Urinary incontinence [Unknown]
  - Withdrawal syndrome [Unknown]
  - Eating disorder [Unknown]
  - Memory impairment [Unknown]
  - Movement disorder [Unknown]
  - Intentional product misuse [Unknown]
  - Vomiting [Unknown]
  - Dehydration [Unknown]
  - Nail injury [Unknown]
  - Limb discomfort [Unknown]
  - Anal incontinence [Unknown]
  - Hyperhidrosis [Unknown]
  - Tremor [Unknown]
  - Drug hypersensitivity [Unknown]

NARRATIVE: CASE EVENT DATE: 202001
